FAERS Safety Report 4628991-4 (Version None)
Quarter: 2005Q2

REPORT INFORMATION
  Report Type: 
  Country: None (occurrence: None)
  Receive Date: 20050405
  Receipt Date: 20050405
  Transmission Date: 20051028
  Serious: Yes (Disabling)
  Sender: FDA-Public Use
  Company Number: None

PATIENT
  Sex: Female
  Weight: 58.9676 kg

DRUGS (1)
  1. CIPROFLOXACIN HCL [Suspect]
     Indication: FISTULA
     Dosage: 500 MG TWICE A DAY ORAL
     Route: 048
     Dates: start: 20041215, end: 20050222

REACTIONS (7)
  - ARTHRALGIA [None]
  - DIFFICULTY IN WALKING [None]
  - GAIT DISTURBANCE [None]
  - INFECTED SKIN ULCER [None]
  - OEDEMA PERIPHERAL [None]
  - PAIN [None]
  - TENDON DISORDER [None]
